FAERS Safety Report 15334028 (Version 1)
Quarter: 2018Q3

REPORT INFORMATION
  Report Type: Spontaneous
  Country: US (occurrence: US)
  Receive Date: 20180830
  Receipt Date: 20180830
  Transmission Date: 20181010
  Serious: Yes (Hospitalization)
  Sender: FDA-Public Use
  Company Number: US-UNITED THERAPEUTICS-UNT-2018-013392

PATIENT
  Sex: Female

DRUGS (1)
  1. REMODULIN [Suspect]
     Active Substance: TREPROSTINIL
     Indication: LUNG DISORDER
     Dosage: 0.1355 ?G/KG, CONTINUING
     Route: 058
     Dates: start: 201703

REACTIONS (4)
  - Thrombocytopenia [Unknown]
  - Anaemia [Unknown]
  - Systemic lupus erythematosus [Unknown]
  - Viral infection [Unknown]

NARRATIVE: CASE EVENT DATE: 20180810
